FAERS Safety Report 4727416-8 (Version None)
Quarter: 2005Q3

REPORT INFORMATION
  Report Type: 
  Country: None (occurrence: None)
  Receive Date: 20050727
  Receipt Date: 20050727
  Transmission Date: 20060218
  Serious: Yes (Hospitalization)
  Sender: FDA-Public Use
  Company Number: None

PATIENT
  Age: 56 Year
  Sex: Female
  Weight: 89.3586 kg

DRUGS (7)
  1. NAPROXEN [Suspect]
     Indication: FIBROMYALGIA
     Dosage: ONE PO DAILY [CHRONIC]
     Route: 048
  2. SYNTHROID [Concomitant]
  3. VIT B12 [Concomitant]
  4. ACTONEL [Concomitant]
  5. PROZAC [Concomitant]
  6. SKELAXIN [Concomitant]
  7. ROPINIROLE [Concomitant]

REACTIONS (6)
  - ABDOMINAL PAIN [None]
  - BEZOAR [None]
  - ENDOSCOPY GASTROINTESTINAL ABNORMAL [None]
  - HAEMATEMESIS [None]
  - THROMBOSIS [None]
  - UPPER GASTROINTESTINAL HAEMORRHAGE [None]
